FAERS Safety Report 11735738 (Version 1)
Quarter: 2015Q4

REPORT INFORMATION
  Report Type: Spontaneous
  Country: US (occurrence: US)
  Receive Date: 20151113
  Receipt Date: 20151113
  Transmission Date: 20160304
  Serious: No
  Sender: FDA-Public Use
  Company Number: US-JNJFOC-20151004715

PATIENT
  Age: 53 Year
  Sex: Male
  Weight: 136.08 kg

DRUGS (2)
  1. INVOKANA [Suspect]
     Active Substance: CANAGLIFLOZIN
     Indication: TYPE 2 DIABETES MELLITUS
     Route: 048
  2. INVOKANA [Suspect]
     Active Substance: CANAGLIFLOZIN
     Indication: TYPE 2 DIABETES MELLITUS
     Route: 048
     Dates: start: 201506

REACTIONS (9)
  - Gastrointestinal motility disorder [Recovered/Resolved]
  - Pain [Recovered/Resolved]
  - Pollakiuria [Recovered/Resolved]
  - Thirst [Recovered/Resolved]
  - Faeces hard [Recovered/Resolved]
  - Hyperhidrosis [Recovered/Resolved]
  - Weight increased [Unknown]
  - Dehydration [Recovered/Resolved]
  - Haemorrhoids [Recovered/Resolved]

NARRATIVE: CASE EVENT DATE: 201506
